FAERS Safety Report 7850642-6 (Version None)
Quarter: 2011Q4

REPORT INFORMATION
  Report Type: 
  Country: None (occurrence: None)
  Receive Date: 20111026
  Receipt Date: 20111017
  Transmission Date: 20120403
  Serious: Yes (Other)
  Sender: FDA-Public Use
  Company Number: US-ASTRAZENECA-2011SE57934

PATIENT
  Age: 70 Year
  Sex: Female

DRUGS (2)
  1. TRAVATAN [Suspect]
     Indication: GLAUCOMA
  2. NEXIUM [Suspect]
     Route: 048

REACTIONS (5)
  - DEPRESSION [None]
  - INFLUENZA [None]
  - NASAL CAVITY CANCER [None]
  - ANXIETY [None]
  - MUSCULAR WEAKNESS [None]
